FAERS Safety Report 22172879 (Version 2)
Quarter: 2023Q2

REPORT INFORMATION
  Report Type: Spontaneous
  Country: AU (occurrence: AU)
  Receive Date: 20230404
  Receipt Date: 20230418
  Transmission Date: 20230722
  Serious: Yes (Hospitalization)
  Sender: FDA-Public Use
  Company Number: AU-MYLANLABS-2023M1014643

PATIENT
  Sex: Male

DRUGS (7)
  1. CLOZARIL [Suspect]
     Active Substance: CLOZAPINE
     Indication: Schizophrenia
     Dosage: UNK
     Route: 048
     Dates: start: 20230131
  2. CLOZARIL [Suspect]
     Active Substance: CLOZAPINE
     Dosage: 12.5 MILLIGRAM
     Route: 048
  3. CLOZARIL [Suspect]
     Active Substance: CLOZAPINE
     Dosage: 25 MILLIGRAM
     Route: 048
  4. CLOZARIL [Suspect]
     Active Substance: CLOZAPINE
     Dosage: 25 MILLIGRAM
     Route: 048
  5. CLOZARIL [Suspect]
     Active Substance: CLOZAPINE
     Dosage: 300 MILLIGRAM, QD( AT NIGHT)
     Route: 065
     Dates: start: 20230222
  6. MIRTAZAPINE [Concomitant]
     Active Substance: MIRTAZAPINE
     Dosage: 30 MILLIGRAM, QD (AT NIGHT)
     Route: 065
  7. LORAZEPAM [Concomitant]
     Active Substance: LORAZEPAM
     Dosage: 1 MILLIGRAM, TID(PRN)
     Route: 065

REACTIONS (2)
  - Hospitalisation [Recovered/Resolved]
  - Therapy interrupted [Unknown]
